FAERS Safety Report 10044208 (Version 3)
Quarter: 2014Q2

REPORT INFORMATION
  Report Type: Report from Study
  Country: JP (occurrence: JP)
  Receive Date: 20140328
  Receipt Date: 20140429
  Transmission Date: 20141212
  Serious: Yes (Death, Life-Threatening)
  Sender: FDA-Public Use
  Company Number: JP-SA-THYM-1001394

PATIENT
  Age: 66 Year
  Sex: Female
  Weight: 44 kg

DRUGS (79)
  1. THYMOGLOBULINE [Suspect]
     Indication: APLASTIC ANAEMIA
     Dosage: 175 MG, QD
     Route: 042
     Dates: start: 20091214, end: 20091218
  2. OMEPRAZOLE [Concomitant]
     Indication: PROPHYLAXIS
     Dosage: 1 DF, QD
     Route: 048
     Dates: start: 20091128, end: 20091224
  3. SODIUM ALGINATE [Concomitant]
     Indication: PROPHYLAXIS
     Dosage: 10 ML, TID
     Route: 048
     Dates: start: 20091128, end: 20091224
  4. POLAPREZINC [Concomitant]
     Indication: PROPHYLAXIS
     Dosage: 1 DAY, BID
     Route: 048
     Dates: start: 20091128, end: 20091224
  5. CARBAZOCHROME SODIUM SULFONATE [Concomitant]
     Indication: PROPHYLAXIS
     Dosage: 1 DF, TID
     Route: 048
     Dates: start: 20091128, end: 20091224
  6. FLUVOXAMINE MALEATE [Concomitant]
     Indication: DEPRESSION
     Dosage: 1 DF, BID
     Route: 048
     Dates: start: 20091208, end: 20091224
  7. ASPARTATE POTASSIUM [Concomitant]
     Indication: HYPOKALAEMIA
     Dosage: 1 DF, TID
     Route: 048
     Dates: start: 20091220, end: 20091224
  8. ALL OTHER THERAPEUTIC PRODUCTS [Concomitant]
     Dosage: 500 ML, TID
     Route: 042
     Dates: start: 20091124, end: 20091125
  9. ALL OTHER THERAPEUTIC PRODUCTS [Concomitant]
     Dosage: 500 ML, BID
     Route: 042
     Dates: start: 20091126, end: 20091127
  10. ALL OTHER THERAPEUTIC PRODUCTS [Concomitant]
     Dosage: 500 ML, TID
     Route: 042
     Dates: start: 20091206, end: 20091210
  11. ALL OTHER THERAPEUTIC PRODUCTS [Concomitant]
     Dosage: 500 ML, BID
     Route: 042
     Dates: start: 20091224, end: 20091225
  12. ALL OTHER THERAPEUTIC PRODUCTS [Concomitant]
     Dosage: 500 ML, BID
     Route: 042
     Dates: start: 20091226, end: 20100108
  13. ALL OTHER THERAPEUTIC PRODUCTS [Concomitant]
     Dosage: 500 ML, QD
     Route: 042
     Dates: start: 20091126, end: 20091127
  14. ALL OTHER THERAPEUTIC PRODUCTS [Concomitant]
     Dosage: 500 ML, QD
     Route: 042
     Dates: start: 20091202, end: 20091205
  15. ALL OTHER THERAPEUTIC PRODUCTS [Concomitant]
     Dosage: 500 ML, QD
     Route: 042
     Dates: start: 20091206, end: 20091210
  16. ALL OTHER THERAPEUTIC PRODUCTS [Concomitant]
     Dosage: 500 ML, QD
     Route: 042
     Dates: start: 20091224, end: 20091225
  17. ALL OTHER THERAPEUTIC PRODUCTS [Concomitant]
     Dosage: 500 ML, QD
     Route: 042
     Dates: start: 20091226, end: 20100108
  18. ALL OTHER THERAPEUTIC PRODUCTS [Concomitant]
     Dosage: 1 DF, QD
     Route: 042
     Dates: start: 20091126, end: 20091127
  19. ALL OTHER THERAPEUTIC PRODUCTS [Concomitant]
     Dosage: 1 DF, QD
     Route: 042
     Dates: start: 20091202, end: 20091205
  20. ALL OTHER THERAPEUTIC PRODUCTS [Concomitant]
     Dosage: 1 DF, QD
     Route: 042
     Dates: start: 20091206, end: 20091210
  21. ALL OTHER THERAPEUTIC PRODUCTS [Concomitant]
     Dosage: 1 DF, QD
     Route: 042
     Dates: start: 20091224, end: 20091225
  22. ALL OTHER THERAPEUTIC PRODUCTS [Concomitant]
     Dosage: 1 DF, QD
     Route: 042
     Dates: start: 20091226, end: 20100108
  23. CALCIUM CHLORIDE DIHYDRATE [Concomitant]
     Dosage: 500 ML, BID
     Route: 042
     Dates: start: 20091128, end: 20091201
  24. CALCIUM CHLORIDE DIHYDRATE/GLUCOSE/SODIUM ACETATE/POTASSIUM CHLORIDE/SODIUM CHLORIDE [Concomitant]
     Dosage: 500 ML, QD
     Route: 042
     Dates: start: 20091202, end: 20091205
  25. ISOTONIC SOLUTIONS [Concomitant]
     Dosage: 500 ML, BID
     Route: 065
     Dates: start: 20091222, end: 20091223
  26. POTASSIUM CHLORIDE [Concomitant]
     Dosage: 1 DF, BID
     Route: 042
     Dates: start: 20091226, end: 20100108
  27. POTASSIUM CHLORIDE [Concomitant]
     Dosage: 1 DF, QD
     Route: 042
     Dates: start: 20091226, end: 20100108
  28. OMEPRAZOLE SODIUM [Concomitant]
     Indication: PROPHYLAXIS
     Dosage: 1 DF, BID
     Route: 042
     Dates: start: 20091124, end: 20091127
  29. FAMOTIDINE [Concomitant]
     Indication: PROPHYLAXIS
     Dosage: 1 DF, BID
     Route: 042
     Dates: start: 20091225, end: 20100108
  30. METHYLPREDNISOLONE SODIUM SUCCINATE [Concomitant]
     Indication: PREMEDICATION
     Dosage: 1 DF, QD
     Route: 042
     Dates: start: 20091214, end: 20091218
  31. METHYLPREDNISOLONE SODIUM SUCCINATE [Concomitant]
     Indication: PREMEDICATION
     Dosage: 1 DF, QD
     Route: 042
     Dates: start: 20091219, end: 20091224
  32. FLUCONAZOLE [Concomitant]
     Indication: FEBRILE NEUTROPENIA
     Dates: start: 20091206, end: 20091210
  33. VANCOMYCIN HYDROCHLORIDE [Concomitant]
     Indication: SEPSIS
     Dosage: 1 DF, BID
     Route: 042
     Dates: start: 20091206, end: 20091210
  34. VANCOMYCIN HYDROCHLORIDE [Concomitant]
     Indication: FEBRILE NEUTROPENIA
     Dosage: 1 DF, BID
     Route: 042
     Dates: start: 20091206, end: 20091210
  35. VANCOMYCIN HYDROCHLORIDE [Concomitant]
     Indication: SEPSIS
     Dosage: 1 DF, BID
     Route: 042
     Dates: start: 20091222, end: 20100101
  36. VANCOMYCIN HYDROCHLORIDE [Concomitant]
     Indication: FEBRILE NEUTROPENIA
     Dosage: 1 DF, BID
     Route: 042
     Dates: start: 20091222, end: 20100101
  37. VANCOMYCIN HYDROCHLORIDE [Concomitant]
     Indication: SEPSIS
     Dates: start: 20091125, end: 20091125
  38. VANCOMYCIN HYDROCHLORIDE [Concomitant]
     Indication: FEBRILE NEUTROPENIA
     Dates: start: 20091125, end: 20091125
  39. PREDNISOLONE ACETATE [Concomitant]
     Indication: PREMEDICATION
     Dosage: 1 DF, QD
     Route: 042
     Dates: start: 20091225, end: 20100101
  40. PREDNISOLONE ACETATE [Concomitant]
     Indication: PREMEDICATION
     Dosage: 1 DF, QD
     Route: 042
     Dates: start: 20100102, end: 20100108
  41. RED BLOOD CELLS, CONCENTRATED [Concomitant]
     Indication: APLASTIC ANAEMIA
     Dosage: 4 U, UNK DOSE:4 UNIT(S)
     Route: 042
     Dates: start: 20091124, end: 20091124
  42. RED BLOOD CELLS, CONCENTRATED [Concomitant]
     Indication: APLASTIC ANAEMIA
     Dosage: 2 U, UNK DOSE:2 UNIT(S)
     Route: 042
     Dates: start: 20091125, end: 20091125
  43. RED BLOOD CELLS, CONCENTRATED [Concomitant]
     Indication: APLASTIC ANAEMIA
     Dosage: 2 U, UNK DOSE:2 UNIT(S)
     Route: 042
     Dates: start: 20091203, end: 20091203
  44. RED BLOOD CELLS, CONCENTRATED [Concomitant]
     Indication: APLASTIC ANAEMIA
     Dosage: 2 U, UNK DOSE:2 UNIT(S)
     Route: 042
     Dates: start: 20091214, end: 20091214
  45. RED BLOOD CELLS, CONCENTRATED [Concomitant]
     Indication: APLASTIC ANAEMIA
     Dosage: 2 U, UNK DOSE:2 UNIT(S)
     Route: 042
     Dates: start: 20091224, end: 20091224
  46. RED BLOOD CELLS, CONCENTRATED [Concomitant]
     Indication: APLASTIC ANAEMIA
     Dosage: 2 U, UNK DOSE:2 UNIT(S)
     Route: 042
     Dates: start: 20091229, end: 20091229
  47. RED BLOOD CELLS, CONCENTRATED [Concomitant]
     Indication: APLASTIC ANAEMIA
     Dosage: 2 U, UNK DOSE:2 UNIT(S)
     Route: 042
     Dates: start: 20100101, end: 20100101
  48. RED BLOOD CELLS, CONCENTRATED [Concomitant]
     Indication: APLASTIC ANAEMIA
     Dosage: 2 U, UNK DOSE:2 UNIT(S)
     Route: 042
     Dates: start: 20100103, end: 20100103
  49. RED BLOOD CELLS, CONCENTRATED [Concomitant]
     Indication: APLASTIC ANAEMIA
     Dosage: 2 U, UNK DOSE:2 UNIT(S)
     Route: 042
     Dates: start: 20100106, end: 20100106
  50. RED BLOOD CELLS, CONCENTRATED [Concomitant]
     Indication: APLASTIC ANAEMIA
     Dosage: 2 U, UNK DOSE:2 UNIT(S)
     Route: 042
     Dates: start: 20100108, end: 20100108
  51. TRANEXAMIC ACID [Concomitant]
     Indication: GASTROINTESTINAL HAEMORRHAGE
     Dosage: 1 DF, BID
     Route: 042
     Dates: start: 20091124, end: 20091127
  52. TRANEXAMIC ACID [Concomitant]
     Indication: GASTROINTESTINAL HAEMORRHAGE
     Dosage: 1 DF, BID
     Route: 042
     Dates: start: 20091225, end: 20100108
  53. GRAN [Concomitant]
     Indication: FEBRILE NEUTROPENIA
     Dates: start: 20091203, end: 20091206
  54. MEROPENEM TRIHYDRATE [Concomitant]
     Indication: SEPSIS
     Dosage: 1 DF, BID
     Route: 042
     Dates: start: 20091125, end: 20091127
  55. MEROPENEM TRIHYDRATE [Concomitant]
     Indication: FEBRILE NEUTROPENIA
     Dosage: 1 DF, BID
     Route: 042
     Dates: start: 20091125, end: 20091127
  56. MEROPENEM TRIHYDRATE [Concomitant]
     Indication: SEPSIS
     Dosage: 1 DF, QID
     Route: 042
     Dates: start: 20091201, end: 20091210
  57. MEROPENEM TRIHYDRATE [Concomitant]
     Indication: FEBRILE NEUTROPENIA
     Dosage: 1 DF, QID
     Route: 042
     Dates: start: 20091201, end: 20091210
  58. MEROPENEM TRIHYDRATE [Concomitant]
     Indication: SEPSIS
     Dosage: 1 DF, BID
     Route: 042
     Dates: start: 20091215, end: 20091216
  59. MEROPENEM TRIHYDRATE [Concomitant]
     Indication: FEBRILE NEUTROPENIA
     Dosage: 1 DF, BID
     Route: 042
     Dates: start: 20091215, end: 20091216
  60. OMEGACIN [Concomitant]
     Indication: FEBRILE NEUTROPENIA
     Dates: start: 20091217, end: 20091221
  61. PLATELETS, HUMAN BLOOD [Concomitant]
     Indication: APLASTIC ANAEMIA
     Dosage: 10 U, UNK DOSE:10 UNIT(S)
     Route: 042
     Dates: start: 20091124, end: 20091124
  62. PLATELETS, HUMAN BLOOD [Concomitant]
     Indication: APLASTIC ANAEMIA
     Dosage: 10 U, UNK DOSE:10 UNIT(S)
     Route: 042
     Dates: start: 20091127, end: 20091127
  63. PLATELETS, HUMAN BLOOD [Concomitant]
     Indication: APLASTIC ANAEMIA
     Dosage: 10 U, UNK DOSE:10 UNIT(S)
     Route: 042
     Dates: start: 20091201, end: 20091201
  64. PLATELETS, HUMAN BLOOD [Concomitant]
     Indication: APLASTIC ANAEMIA
     Dosage: 10 U, UNK DOSE:10 UNIT(S)
     Route: 042
     Dates: start: 20091205, end: 20091205
  65. PLATELETS, HUMAN BLOOD [Concomitant]
     Indication: APLASTIC ANAEMIA
     Dosage: 10 U, UNK DOSE:10 UNIT(S)
     Route: 042
     Dates: start: 20091210, end: 20091210
  66. PLATELETS, HUMAN BLOOD [Concomitant]
     Indication: APLASTIC ANAEMIA
     Dosage: 10 U, UNK DOSE:10 UNIT(S)
     Route: 042
     Dates: start: 20091214, end: 20091214
  67. PLATELETS, HUMAN BLOOD [Concomitant]
     Indication: APLASTIC ANAEMIA
     Dosage: 10 U, UNK DOSE:10 UNIT(S)
     Route: 042
     Dates: start: 20091216, end: 20091216
  68. PLATELETS, HUMAN BLOOD [Concomitant]
     Indication: APLASTIC ANAEMIA
     Dosage: 10 U, UNK DOSE:10 UNIT(S)
     Route: 042
     Dates: start: 20091218, end: 20091218
  69. PLATELETS, HUMAN BLOOD [Concomitant]
     Indication: APLASTIC ANAEMIA
     Dosage: 10 U, UNK DOSE:10 UNIT(S)
     Route: 042
     Dates: start: 20091220, end: 20091220
  70. PLATELETS, HUMAN BLOOD [Concomitant]
     Indication: APLASTIC ANAEMIA
     Dosage: 10 U, UNK DOSE:10 UNIT(S)
     Route: 042
     Dates: start: 20091222, end: 20091222
  71. PLATELETS, HUMAN BLOOD [Concomitant]
     Indication: APLASTIC ANAEMIA
     Dosage: 10 U, UNK DOSE:10 UNIT(S)
     Route: 042
     Dates: start: 20091224, end: 20091224
  72. PLATELETS, HUMAN BLOOD [Concomitant]
     Indication: APLASTIC ANAEMIA
     Dosage: 10 U, UNK DOSE:10 UNIT(S)
     Route: 042
     Dates: start: 20091226, end: 20091226
  73. PLATELETS, HUMAN BLOOD [Concomitant]
     Indication: APLASTIC ANAEMIA
     Dosage: 10 U, UNK DOSE:10 UNIT(S)
     Route: 042
     Dates: start: 20091228, end: 20091228
  74. PLATELETS, HUMAN BLOOD [Concomitant]
     Indication: APLASTIC ANAEMIA
     Dosage: 10 U, UNK DOSE:10 UNIT(S)
     Route: 042
     Dates: start: 20100101, end: 20100101
  75. PLATELETS, HUMAN BLOOD [Concomitant]
     Indication: APLASTIC ANAEMIA
     Dosage: 10 U, UNK DOSE:10 UNIT(S)
     Route: 042
     Dates: start: 20100103, end: 20100103
  76. PLATELETS, HUMAN BLOOD [Concomitant]
     Indication: APLASTIC ANAEMIA
     Dosage: 10 U, UNK DOSE:10 UNIT(S)
     Route: 042
     Dates: start: 20100106, end: 20100106
  77. PLATELETS, HUMAN BLOOD [Concomitant]
     Indication: APLASTIC ANAEMIA
     Dosage: 10 U, UNK DOSE:10 UNIT(S)
     Route: 042
     Dates: start: 20100108, end: 20100108
  78. PLASMA [Concomitant]
     Indication: APLASTIC ANAEMIA
     Dosage: 2 U, UNK DOSE:2 UNIT(S)
     Route: 042
     Dates: start: 20100106, end: 20100108
  79. ACICLOVIR [Concomitant]
     Indication: ORAL HERPES
     Dates: start: 20091127, end: 20091202

REACTIONS (9)
  - Gastrointestinal haemorrhage [Fatal]
  - Cerebral infarction [Fatal]
  - Subarachnoid haemorrhage [Fatal]
  - Cardiac failure [Fatal]
  - Sepsis [Not Recovered/Not Resolved]
  - Herpes zoster [Recovered/Resolved]
  - Pyrexia [Not Recovered/Not Resolved]
  - Hypokalaemia [Not Recovered/Not Resolved]
  - Oral candidiasis [Recovered/Resolved]
